FAERS Safety Report 22386103 (Version 1)
Quarter: 2023Q2

REPORT INFORMATION
  Report Type: Spontaneous
  Country: US (occurrence: US)
  Receive Date: 20230530
  Receipt Date: 20230530
  Transmission Date: 20230722
  Serious: Yes (Other)
  Sender: FDA-Public Use
  Company Number: US-BAYER-2023A071452

PATIENT
  Age: 16 Year
  Sex: Female
  Weight: 63.7 kg

DRUGS (2)
  1. NAPROXEN SODIUM [Suspect]
     Active Substance: NAPROXEN SODIUM
     Dosage: 41.8 G
  2. IBUPROFEN [Suspect]
     Active Substance: IBUPROFEN
     Dosage: 2 G

REACTIONS (6)
  - Lactic acidosis [None]
  - Intentional overdose [None]
  - Agitation [None]
  - Lethargy [None]
  - Hypotension [None]
  - Disorientation [None]
